FAERS Safety Report 6097084-4 (Version None)
Quarter: 2009Q1

REPORT INFORMATION
  Report Type: 
  Country: None (occurrence: None)
  Receive Date: 20090225
  Receipt Date: 20090218
  Transmission Date: 20090719
  Serious: Yes (Hospitalization)
  Sender: FDA-Public Use
  Company Number: LTI2009A00043

PATIENT
  Age: 84 Year
  Sex: Female

DRUGS (11)
  1. LANSOPRAZOLE [Suspect]
     Dosage: ORAL
     Route: 048
  2. PREVISCAN (FLUINDIONE) (TABLETS) [Suspect]
     Dosage: 1 TAB. (1 TAB., 1 IN 1 D) ORAL; ORAL
     Route: 048
     Dates: start: 20050115, end: 20070928
  3. PREVISCAN (FLUINDIONE) (TABLETS) [Suspect]
     Dosage: 1 TAB. (1 TAB., 1 IN 1 D) ORAL; ORAL
     Route: 048
     Dates: start: 20071004
  4. METFORMIN HCL [Concomitant]
  5. PRAVASTATIN [Concomitant]
  6. LASIX [Concomitant]
  7. KARDEGIC (ACETYLSALICYLATE LYSINE) [Concomitant]
  8. AMLODIPINE BESYLATE [Concomitant]
  9. APROVEL (IRBESARTAN0 [Concomitant]
  10. METOPROLOL TARTRATE [Concomitant]
  11. CORDARONE [Concomitant]

REACTIONS (6)
  - CHEST PAIN [None]
  - DYSPNOEA [None]
  - ECCHYMOSIS [None]
  - FALL [None]
  - HAEMATOMA [None]
  - INTERNATIONAL NORMALISED RATIO INCREASED [None]
